FAERS Safety Report 8450041-2 (Version None)
Quarter: 2012Q2

REPORT INFORMATION
  Report Type: 
  Country: None (occurrence: None)
  Receive Date: 20120614
  Receipt Date: 20120614
  Transmission Date: 20120825
  Serious: Yes (Other)
  Sender: FDA-Public Use
  Company Number: None

PATIENT
  Age: 73 Year
  Sex: Male
  Weight: 77.1115 kg

DRUGS (3)
  1. HYDROXYUREA [Suspect]
     Indication: THROMBOCYTOSIS
     Dosage: 500 MG 1/DAY ORAL
     Route: 048
     Dates: start: 20120321, end: 20120416
  2. HYDROXYUREA [Suspect]
     Indication: THROMBOCYTOSIS
     Dosage: 500 MG 1/DAY ORAL
     Route: 048
     Dates: start: 20110901, end: 20120320
  3. HYDROXYUREA [Suspect]
     Indication: THROMBOCYTOSIS
     Dosage: 500 MG 1/DAY ORAL
     Route: 048
     Dates: start: 20120417

REACTIONS (2)
  - PRODUCT SUBSTITUTION ISSUE [None]
  - ADVERSE DRUG REACTION [None]
